FAERS Safety Report 13889909 (Version 1)
Quarter: 2017Q3

REPORT INFORMATION
  Report Type: Spontaneous
  Country: US (occurrence: US)
  Receive Date: 20170822
  Receipt Date: 20170822
  Transmission Date: 20171127
  Serious: No
  Sender: FDA-Public Use
  Company Number: US-CONCORDIA PHARMACEUTICALS INC.-GSH201701-000019

PATIENT
  Sex: Male

DRUGS (2)
  1. DYRENIUM [Suspect]
     Active Substance: TRIAMTERENE
     Indication: PERIPHERAL SWELLING
  2. DYRENIUM [Suspect]
     Active Substance: TRIAMTERENE
     Indication: PERIPHERAL SWELLING

REACTIONS (2)
  - Muscle spasms [Recovered/Resolved]
  - Drug effect incomplete [Unknown]
